FAERS Safety Report 17085408 (Version 1)
Quarter: 2019Q4

REPORT INFORMATION
  Report Type: Spontaneous
  Country: JP (occurrence: JP)
  Receive Date: 20191128
  Receipt Date: 20191128
  Transmission Date: 20200122
  Serious: Yes (Other)
  Sender: FDA-Public Use
  Company Number: JP-LUPIN PHARMACEUTICALS INC.-2019-07747

PATIENT
  Age: 62 Year
  Sex: Male

DRUGS (1)
  1. CLOBETASOL [Suspect]
     Active Substance: CLOBETASOL
     Indication: PUSTULAR PSORIASIS
     Dosage: UNK
     Route: 061

REACTIONS (2)
  - Skin atrophy [Recovering/Resolving]
  - Drug ineffective [Unknown]
